FAERS Safety Report 21323385 (Version 1)
Quarter: 2022Q3

REPORT INFORMATION
  Report Type: Spontaneous
  Country: US (occurrence: None)
  Receive Date: 20220910
  Receipt Date: 20220910
  Transmission Date: 20221027
  Serious: Yes (Other)
  Sender: FDA-Public Use
  Company Number: None

PATIENT
  Age: 14 Year
  Sex: Male
  Weight: 61.65 kg

DRUGS (3)
  1. OXCARBAZEPINE [Suspect]
     Active Substance: OXCARBAZEPINE
     Indication: Seizure
  2. methylphenidate HCl 5 mg/mL [Concomitant]
  3. cloNIDine 0.1 mg tablet [Concomitant]

REACTIONS (4)
  - Product substitution issue [None]
  - Aggression [None]
  - Seizure [None]
  - Intentional dose omission [None]

NARRATIVE: CASE EVENT DATE: 20220427
